FAERS Safety Report 11173471 (Version 14)
Quarter: 2015Q4

REPORT INFORMATION
  Report Type: Report from Study
  Country: CA (occurrence: CA)
  Receive Date: 20150609
  Receipt Date: 20151115
  Transmission Date: 20160304
  Serious: Yes (Other)
  Sender: FDA-Public Use
  Company Number: CA-ROCHE-1587443

PATIENT
  Age: 56 Year
  Sex: Female
  Weight: 70.82 kg

DRUGS (15)
  1. ZOPICLONE [Concomitant]
     Active Substance: ZOPICLONE
     Dosage: 1-2 TIMES IN DAY STARTED 4 YEARS AGO.
     Route: 048
  2. ACTEMRA [Suspect]
     Active Substance: TOCILIZUMAB
     Indication: RHEUMATOID ARTHRITIS
     Route: 058
  3. ZOLOFT [Concomitant]
     Active Substance: SERTRALINE HYDROCHLORIDE
  4. ENBREL [Suspect]
     Active Substance: ETANERCEPT
     Indication: PRODUCT USED FOR UNKNOWN INDICATION
     Route: 065
  5. BOTOX [Concomitant]
     Active Substance: ONABOTULINUMTOXINA
  6. LORAZEPAM. [Concomitant]
     Active Substance: LORAZEPAM
  7. AMITRIPTYLINE [Concomitant]
     Active Substance: AMITRIPTYLINE
     Dosage: AT NIGHT, 10-20MG, STARTED A COUPLE OF YEARS AGO
     Route: 048
  8. CITALOPRAM [Concomitant]
     Active Substance: CITALOPRAM HYDROBROMIDE
     Dosage: STARTED 6 MONTHS AGO.
     Route: 048
  9. CIPROFLOXACIN. [Suspect]
     Active Substance: CIPROFLOXACIN
     Indication: CYSTITIS
     Route: 065
  10. APO-MOMETASONE [Concomitant]
     Dosage: STARTED ABOUT A YEAR AGO.
     Route: 065
  11. ESTALIS [Concomitant]
     Active Substance: ESTRADIOL\NORETHINDRONE ACETATE
     Dosage: 250/50MG, START A YEAR OR TWO AGO.
     Route: 062
  12. ACTEMRA [Suspect]
     Active Substance: TOCILIZUMAB
     Indication: RHEUMATOID ARTHRITIS
     Route: 042
     Dates: start: 20150525, end: 20150827
  13. ACTEMRA [Suspect]
     Active Substance: TOCILIZUMAB
     Dosage: STOPPED
     Route: 042
     Dates: start: 20150724, end: 20150827
  14. ACTEMRA [Suspect]
     Active Substance: TOCILIZUMAB
     Route: 042
     Dates: start: 20150625
  15. TYLENOL WITH CODEINE [Concomitant]
     Active Substance: ACETAMINOPHEN\CODEINE PHOSPHATE
     Indication: PAIN
     Dosage: STARTED 5 YEARS AGO.
     Route: 048

REACTIONS (60)
  - Chest discomfort [Unknown]
  - Nasopharyngitis [Recovered/Resolved]
  - Chest pain [Recovered/Resolved]
  - Pain in extremity [Unknown]
  - Cardiac disorder [Unknown]
  - Fungal skin infection [Unknown]
  - Pain [Not Recovered/Not Resolved]
  - Joint swelling [Not Recovered/Not Resolved]
  - Choking [Unknown]
  - Fatigue [Recovering/Resolving]
  - Peripheral swelling [Unknown]
  - Rheumatoid arthritis [Unknown]
  - Joint swelling [Unknown]
  - Insomnia [Unknown]
  - Nerve injury [Recovering/Resolving]
  - Menopause [Unknown]
  - Bone pain [Recovering/Resolving]
  - Dental caries [Unknown]
  - Nausea [Not Recovered/Not Resolved]
  - Swelling face [Unknown]
  - Decreased appetite [Unknown]
  - Dizziness [Recovered/Resolved]
  - Dizziness [Unknown]
  - White blood cell count decreased [Recovered/Resolved]
  - Vitreous floaters [Not Recovered/Not Resolved]
  - Skin discolouration [Unknown]
  - Vomiting [Unknown]
  - Loss of consciousness [Unknown]
  - White blood cell count decreased [Recovering/Resolving]
  - Pruritus [Unknown]
  - Stress [Not Recovered/Not Resolved]
  - Swelling [Unknown]
  - Hyperhidrosis [Unknown]
  - Diaphragmatic rupture [Not Recovered/Not Resolved]
  - Urticaria [Not Recovered/Not Resolved]
  - Dyspnoea [Unknown]
  - Vitamin D decreased [Unknown]
  - Abdominal pain upper [Unknown]
  - Change of bowel habit [Unknown]
  - Musculoskeletal stiffness [Unknown]
  - Procedural anxiety [Unknown]
  - Osteoarthritis [Unknown]
  - Rash [Unknown]
  - Fatigue [Unknown]
  - Urticaria [Recovered/Resolved]
  - Anxiety [Unknown]
  - Amnesia [Unknown]
  - Depressed mood [Unknown]
  - Thyroid disorder [Unknown]
  - Malaise [Not Recovered/Not Resolved]
  - Injection site haemorrhage [Unknown]
  - Arthralgia [Recovered/Resolved]
  - Confusional state [Unknown]
  - Erythema of eyelid [Unknown]
  - Cystitis [Unknown]
  - Thyroid disorder [Not Recovered/Not Resolved]
  - Chills [Not Recovered/Not Resolved]
  - Nausea [Unknown]
  - Confusional state [Not Recovered/Not Resolved]
  - Somnolence [Not Recovered/Not Resolved]

NARRATIVE: CASE EVENT DATE: 20150528
